FAERS Safety Report 9491839 (Version 2)
Quarter: 2013Q3

REPORT INFORMATION
  Report Type: Not Available
  Country: US (occurrence: US)
  Receive Date: 20130919
  Receipt Date: 20130919
  Transmission Date: 20140515
  Serious: Yes (Other)
  Sender: FDA-Public Use
  Company Number: US-LUNDBECK-DKLU1083540

PATIENT
  Age: 64 Year
  Sex: Male

DRUGS (4)
  1. SABRIL (TABLET) [Suspect]
     Indication: GRAND MAL CONVULSION
     Route: 048
     Dates: start: 20120723
  2. SABRIL (TABLET) [Suspect]
     Indication: COMPLEX PARTIAL SEIZURES
     Route: 048
  3. DILANTIN [Concomitant]
     Indication: PRODUCT USED FOR UNKNOWN INDICATION
  4. GABITRIL [Concomitant]
     Indication: PRODUCT USED FOR UNKNOWN INDICATION

REACTIONS (2)
  - Vision blurred [Unknown]
  - Somnolence [Unknown]
